FAERS Safety Report 9715894 (Version 1)
Quarter: 2013Q4

REPORT INFORMATION
  Report Type: Spontaneous
  Country: US (occurrence: None)
  Receive Date: 20131126
  Receipt Date: 20131126
  Transmission Date: 20140711
  Serious: Yes (Other)
  Sender: FDA-Public Use
  Company Number: None

PATIENT
  Age: 60 Year
  Sex: Male
  Weight: 96.16 kg

DRUGS (1)
  1. ESCITALOPRAM [Suspect]
     Route: 048

REACTIONS (3)
  - Depression [None]
  - Asthenia [None]
  - Drug ineffective [None]
